FAERS Safety Report 4870371-0 (Version None)
Quarter: 2005Q4

REPORT INFORMATION
  Report Type: 
  Country: None (occurrence: None)
  Receive Date: 20051228
  Receipt Date: 20051222
  Transmission Date: 20060501
  Serious: Yes (Hospitalization, Other)
  Sender: FDA-Public Use
  Company Number: 2005CL000624

PATIENT
  Age: 48 Year
  Sex: Female
  Weight: 77 kg

DRUGS (4)
  1. BYETTA [Suspect]
     Indication: DIABETES MELLITUS INSULIN-DEPENDENT
     Dosage: 10 MCG; QID; SC
     Route: 058
     Dates: start: 20050810, end: 20051204
  2. LEVOTHYROXINE SODIUM [Concomitant]
  3. ASPARTE [Concomitant]
  4. TRANDOLAPRIL [Concomitant]

REACTIONS (12)
  - CALCINOSIS [None]
  - DIABETIC KETOACIDOSIS [None]
  - EPSTEIN-BARR VIRUS ANTIBODY POSITIVE [None]
  - HEART RATE INCREASED [None]
  - HEPATIC STEATOSIS [None]
  - LYMPHADENOPATHY [None]
  - LYMPHOCYTE PERCENTAGE DECREASED [None]
  - MONOCYTE PERCENTAGE DECREASED [None]
  - NEUTROPHIL PERCENTAGE INCREASED [None]
  - PYREXIA [None]
  - SPLEEN DISORDER [None]
  - WHITE BLOOD CELL COUNT INCREASED [None]
